FAERS Safety Report 6358655-0 (Version None)
Quarter: 2009Q3

REPORT INFORMATION
  Report Type: 
  Country: None (occurrence: None)
  Receive Date: 20090914
  Receipt Date: 20090902
  Transmission Date: 20100115
  Serious: Yes (Hospitalization)
  Sender: FDA-Public Use
  Company Number: DSA_41588_2009

PATIENT
  Sex: Male

DRUGS (7)
  1. XENAZINE [Suspect]
     Indication: HUNTINGTON'S CHOREA
     Dosage: 12.5 MG BID;
     Dates: start: 20090101
  2. CITALOPRAM HYDROBROMIDE [Concomitant]
  3. KEFLEX [Concomitant]
  4. IRON [Concomitant]
  5. CLONAZEPAM [Concomitant]
  6. OXYBUTYNIN CHLORIDE [Concomitant]
  7. FISH OIL [Concomitant]

REACTIONS (1)
  - HYPOGLYCAEMIA [None]
